FAERS Safety Report 6061543-0 (Version None)
Quarter: 2009Q1

REPORT INFORMATION
  Report Type: 
  Country: None (occurrence: None)
  Receive Date: 20090129
  Receipt Date: 20090129
  Transmission Date: 20090719
  Serious: Yes (Life-Threatening)
  Sender: FDA-Public Use
  Company Number: None

PATIENT
  Age: 34 Year
  Sex: Female
  Weight: 61.2356 kg

DRUGS (2)
  1. VYVANSE [Suspect]
     Indication: ATTENTION DEFICIT/HYPERACTIVITY DISORDER
     Dosage: 100 MG Q.D. PO
     Route: 048
     Dates: start: 20071101, end: 20080501
  2. VYVANSE [Suspect]
     Indication: ATTENTION DEFICIT/HYPERACTIVITY DISORDER
     Dosage: 100 MG Q.D. PO
     Route: 048
     Dates: start: 20080901, end: 20081222

REACTIONS (3)
  - AFFECT LABILITY [None]
  - OBSESSIVE THOUGHTS [None]
  - SUICIDAL IDEATION [None]
